FAERS Safety Report 14314446 (Version 1)
Quarter: 2017Q4

REPORT INFORMATION
  Report Type: Spontaneous
  Country: US (occurrence: US)
  Receive Date: 20171221
  Receipt Date: 20171221
  Transmission Date: 20180321
  Serious: No
  Sender: FDA-Public Use
  Company Number: US-BAYER-2017-243120

PATIENT
  Age: 42 Year
  Sex: Female

DRUGS (1)
  1. MIRENA [Suspect]
     Active Substance: LEVONORGESTREL
     Dosage: 20 MCG/24HR, CONT
     Route: 015
     Dates: start: 201508, end: 2017

REACTIONS (5)
  - Gastrooesophageal reflux disease [Recovered/Resolved]
  - Feeling abnormal [None]
  - Constipation [None]
  - Oesophagitis [Recovered/Resolved]
  - Eructation [None]

NARRATIVE: CASE EVENT DATE: 2015
